FAERS Safety Report 14603235 (Version 1)
Quarter: 2018Q1

REPORT INFORMATION
  Report Type: Spontaneous
  Country: HK (occurrence: HK)
  Receive Date: 20180306
  Receipt Date: 20180306
  Transmission Date: 20180509
  Serious: Yes (Death)
  Sender: FDA-Public Use
  Company Number: HK-NORTHSTAR HEALTHCARE HOLDINGS-HK-2018NSR000079

PATIENT
  Age: 53 Year
  Sex: Female

DRUGS (4)
  1. SIBUTRAMINE [Suspect]
     Active Substance: SIBUTRAMINE
     Indication: WEIGHT DECREASED
     Dosage: UNK
  2. PROPRANOLOL HYDROCHLORIDE. [Suspect]
     Active Substance: PROPRANOLOL HYDROCHLORIDE
     Indication: WEIGHT DECREASED
     Dosage: UNK
  3. FENFLURAMINE [Suspect]
     Active Substance: FENFLURAMINE
     Indication: WEIGHT DECREASED
     Dosage: UNK
  4. PHENOLPHTHALEIN [Suspect]
     Active Substance: PHENOLPHTHALEIN
     Indication: WEIGHT DECREASED
     Dosage: UNK

REACTIONS (5)
  - Cardiac arrest [Fatal]
  - Pulmonary hypertension [Fatal]
  - Cardiac valve disease [Fatal]
  - Thyroid function test abnormal [Fatal]
  - Toxicity to various agents [Fatal]
